FAERS Safety Report 20456295 (Version 2)
Quarter: 2022Q1

REPORT INFORMATION
  Report Type: Spontaneous
  Country: BE (occurrence: BE)
  Receive Date: 20220210
  Receipt Date: 20220216
  Transmission Date: 20220423
  Serious: Yes (Other)
  Sender: FDA-Public Use
  Company Number: BE-MLMSERVICE-20220131-3345759-1

PATIENT
  Age: 30 Year
  Sex: Female

DRUGS (14)
  1. MEROPENEM [Suspect]
     Active Substance: MEROPENEM
     Indication: Klebsiella infection
     Dosage: UP TO 2 G, Q4H
     Route: 042
     Dates: start: 2016, end: 2016
  2. MEROPENEM [Suspect]
     Active Substance: MEROPENEM
     Dosage: UP TO 2 G, Q4H
     Route: 042
     Dates: start: 2016, end: 2018
  3. PIPERACILLIN AND TAZOBACTAM [Concomitant]
     Active Substance: PIPERACILLIN SODIUM\TAZOBACTAM SODIUM
     Dosage: 4.5 G, 4X/DAY
     Route: 042
     Dates: start: 2016, end: 2016
  4. VANCOMYCIN [Concomitant]
     Active Substance: VANCOMYCIN
     Dosage: 30 MG/KG, 1X/DAY
     Route: 042
     Dates: start: 2016, end: 2016
  5. COLISTIN [Concomitant]
     Active Substance: COLISTIN
     Dosage: UP TO 20 MIU
     Route: 042
     Dates: start: 2016, end: 2016
  6. COLISTIN [Concomitant]
     Active Substance: COLISTIN
     Dosage: UP TO 20 MIU
     Dates: start: 2016, end: 2018
  7. AMIKACIN [Concomitant]
     Active Substance: AMIKACIN
     Dosage: 1800 MG, 1X/DAY
     Route: 042
     Dates: start: 2016, end: 2016
  8. FOSFOMYCIN [Concomitant]
     Active Substance: FOSFOMYCIN
     Dosage: 4 G, EVERY 4 HRS
     Route: 042
     Dates: start: 2016, end: 2016
  9. GENTAMICIN [Concomitant]
     Active Substance: GENTAMICIN
     Dosage: 400 MG, 1X/DAY
     Route: 042
     Dates: start: 2016, end: 2016
  10. FLUCLOXACILLIN [Concomitant]
     Active Substance: FLUCLOXACILLIN
     Dosage: 2 G, EVERY 4 HRS
     Route: 042
     Dates: start: 2016, end: 2018
  11. SULFAMETHOXAZOLE AND TRIMETHOPRIM [Concomitant]
     Active Substance: SULFAMETHOXAZOLE\TRIMETHOPRIM
     Dosage: 1660 MG, 2X/DAY
     Route: 042
     Dates: start: 2016, end: 2018
  12. CLARITHROMYCIN [Concomitant]
     Active Substance: CLARITHROMYCIN
     Dosage: 500 MG, 2X/DAY
     Route: 048
     Dates: start: 2016, end: 2018
  13. RIFAMPIN [Concomitant]
     Active Substance: RIFAMPIN
     Dosage: 450 MG, 1X/DAY
     Route: 048
     Dates: start: 2016, end: 2018
  14. ETHAMBUTOL [Concomitant]
     Active Substance: ETHAMBUTOL HYDROCHLORIDE
     Dosage: 1200 MG, 1X/DAY
     Route: 048
     Dates: start: 2016, end: 2018

REACTIONS (1)
  - Febrile neutropenia [Unknown]

NARRATIVE: CASE EVENT DATE: 20160101
